FAERS Safety Report 13882688 (Version 1)
Quarter: 2017Q3

REPORT INFORMATION
  Report Type: Spontaneous
  Country: FR (occurrence: FR)
  Receive Date: 20170818
  Receipt Date: 20170818
  Transmission Date: 20171127
  Serious: Yes (Death, Hospitalization)
  Sender: FDA-Public Use
  Company Number: FR-PFIZER INC-2017355628

PATIENT
  Age: 60 Year
  Sex: Female

DRUGS (5)
  1. POLARAMINE [Concomitant]
     Active Substance: DEXCHLORPHENIRAMINE MALEATE
  2. PACLITAXEL HOSPIRA [Suspect]
     Active Substance: PACLITAXEL
     Indication: BREAST CANCER
     Dosage: 150 MG, WEEKLY
     Route: 042
     Dates: start: 20170711, end: 20170725
  3. RANITIDINE. [Concomitant]
     Active Substance: RANITIDINE
  4. ONDANSETRON [Concomitant]
     Active Substance: ONDANSETRON
  5. METHYLPREDNISOLONE. [Concomitant]
     Active Substance: METHYLPREDNISOLONE

REACTIONS (3)
  - Febrile bone marrow aplasia [Fatal]
  - Cholestasis [Fatal]
  - Mucosal inflammation [Fatal]

NARRATIVE: CASE EVENT DATE: 20170729
